FAERS Safety Report 14818715 (Version 6)
Quarter: 2018Q3

REPORT INFORMATION
  Report Type: Spontaneous
  Country: US (occurrence: US)
  Receive Date: 20180427
  Receipt Date: 20180911
  Transmission Date: 20181010
  Serious: No
  Sender: FDA-Public Use
  Company Number: US-PFIZER INC-2018172717

PATIENT
  Age: 49 Year
  Sex: Female
  Weight: 82 kg

DRUGS (4)
  1. IBRANCE [Suspect]
     Active Substance: PALBOCICLIB
     Dosage: 125 MG, CYCLIC (D 1?21 Q 28 DAYS)
     Route: 048
     Dates: start: 20180310
  2. IBRANCE [Suspect]
     Active Substance: PALBOCICLIB
     Indication: BREAST CANCER METASTATIC
     Dosage: 125 MG, CYCLIC (D 1?21 Q 28 DAYS)
     Route: 048
     Dates: start: 20180310
  3. IBRANCE [Suspect]
     Active Substance: PALBOCICLIB
     Dosage: 125 MG, CYCLIC (D 1?21 Q 28 DAYS)
     Route: 048
     Dates: start: 20180310, end: 2018
  4. IBRANCE [Suspect]
     Active Substance: PALBOCICLIB
     Dosage: 125 MG, DAILY
     Route: 048
     Dates: start: 20180310

REACTIONS (12)
  - Neoplasm progression [Unknown]
  - Back pain [Unknown]
  - Flank pain [Recovering/Resolving]
  - Dizziness [Unknown]
  - Back pain [Recovering/Resolving]
  - Nausea [Not Recovered/Not Resolved]
  - Asthenia [Not Recovered/Not Resolved]
  - Tumour marker increased [Unknown]
  - Abdominal pain [Unknown]
  - Fatigue [Unknown]
  - Vomiting [Unknown]
  - Red blood cell count decreased [Unknown]

NARRATIVE: CASE EVENT DATE: 2018
